FAERS Safety Report 9732857 (Version 2)
Quarter: 2015Q3

REPORT INFORMATION
  Report Type: Spontaneous
  Country: US (occurrence: US)
  Receive Date: 20131204
  Receipt Date: 20150804
  Transmission Date: 20151125
  Serious: No
  Sender: FDA-Public Use
  Company Number: US-GILEAD-2009-0021460

PATIENT
  Age: 46 Year
  Sex: Female
  Weight: 81.65 kg

DRUGS (13)
  1. LASIX [Concomitant]
     Active Substance: FUROSEMIDE
  2. REVATIO [Concomitant]
     Active Substance: SILDENAFIL CITRATE
  3. CARDIZEM CD [Concomitant]
     Active Substance: DILTIAZEM HYDROCHLORIDE
  4. AMBIEN [Concomitant]
     Active Substance: ZOLPIDEM TARTRATE
  5. PARACETAMOL/HYDROCODONE BITARTRATE [Concomitant]
  6. LETAIRIS [Suspect]
     Active Substance: AMBRISENTAN
     Indication: PULMONARY ARTERIAL HYPERTENSION
     Route: 048
     Dates: start: 20090225
  7. FLOLAN [Concomitant]
     Active Substance: EPOPROSTENOL SODIUM
  8. DIGOXIN. [Concomitant]
     Active Substance: DIGOXIN
  9. MONOPRIL [Concomitant]
     Active Substance: FOSINOPRIL SODIUM
  10. NEURONTIN [Concomitant]
     Active Substance: GABAPENTIN
  11. COUMADIN [Concomitant]
     Active Substance: WARFARIN SODIUM
  12. MICRO-K [Concomitant]
     Active Substance: POTASSIUM CHLORIDE
  13. ELAVIL [Concomitant]
     Active Substance: AMITRIPTYLINE HYDROCHLORIDE

REACTIONS (1)
  - Rash [Unknown]
